FAERS Safety Report 25923657 (Version 2)
Quarter: 2025Q4

REPORT INFORMATION
  Report Type: Other
  Country: GB (occurrence: GB)
  Receive Date: 20251015
  Receipt Date: 20251104
  Transmission Date: 20260117
  Serious: Yes (Other)
  Sender: GLENMARK
  Company Number: None

PATIENT
  Age: 69 Year
  Sex: Female
  Weight: 80 kg

DRUGS (2)
  1. PRAMIPEXOLE DIHYDROCHLORIDE [Suspect]
     Active Substance: PRAMIPEXOLE DIHYDROCHLORIDE
     Indication: Restless legs syndrome
     Dosage: 88 MILLIGRAM, TID, 3 X 088MG PER NIGHT
     Route: 065
  2. PRAMIPEXOLE DIHYDROCHLORIDE [Suspect]
     Active Substance: PRAMIPEXOLE DIHYDROCHLORIDE
     Dosage: 440 MILLIGRAM, QD (88 MILLIGRAM (05 TIMES PER DAY), 5 X 088MG
     Route: 065
     Dates: end: 20240901

REACTIONS (4)
  - Lip cosmetic procedure [Recovered/Resolved with Sequelae]
  - Restless leg augmentation syndrome [Recovered/Resolved with Sequelae]
  - Medication error [Unknown]
  - Withdrawal syndrome [Unknown]
